FAERS Safety Report 13068812 (Version 1)
Quarter: 2016Q4

REPORT INFORMATION
  Report Type: Spontaneous
  Country: US (occurrence: US)
  Receive Date: 20161228
  Receipt Date: 20161228
  Transmission Date: 20170207
  Serious: No
  Sender: FDA-Public Use
  Company Number: US-TEVA-716832ACC

PATIENT
  Sex: Female

DRUGS (1)
  1. PLAN B ONE-STEP [Suspect]
     Active Substance: LEVONORGESTREL
     Indication: POST COITAL CONTRACEPTION
     Dates: start: 20161126, end: 20161126

REACTIONS (5)
  - Nausea [Unknown]
  - Back pain [Unknown]
  - Vaginal discharge [Unknown]
  - Vomiting [Unknown]
  - Muscle spasms [Unknown]

NARRATIVE: CASE EVENT DATE: 20161126
